FAERS Safety Report 19680001 (Version 2)
Quarter: 2021Q3

REPORT INFORMATION
  Report Type: Spontaneous
  Country: US (occurrence: US)
  Receive Date: 20210810
  Receipt Date: 20210826
  Transmission Date: 20211014
  Serious: Yes (Hospitalization, Other)
  Sender: FDA-Public Use
  Company Number: US-UNITED THERAPEUTICS-UNT-2021-013338

PATIENT
  Age: 67 Year
  Sex: Male
  Weight: 81.18 kg

DRUGS (4)
  1. TYVASO [Suspect]
     Active Substance: TREPROSTINIL
     Dosage: 60?120 ?G, QID
  2. TYVASO [Suspect]
     Active Substance: TREPROSTINIL
     Indication: PULMONARY ARTERIAL HYPERTENSION
     Dosage: UNK
     Dates: start: 20170127
  3. OPSUMIT [Concomitant]
     Active Substance: MACITENTAN
     Indication: PRODUCT USED FOR UNKNOWN INDICATION
     Dosage: UNK
     Route: 065
  4. TYVASO [Suspect]
     Active Substance: TREPROSTINIL
     Dosage: UNK

REACTIONS (10)
  - Muscular weakness [Unknown]
  - Incoherent [Unknown]
  - Loss of consciousness [Unknown]
  - Skin discolouration [Unknown]
  - Confusional state [Unknown]
  - Asthenia [Unknown]
  - Off label use [Unknown]
  - Ammonia increased [Unknown]
  - Liver disorder [Unknown]
  - Somnolence [Unknown]

NARRATIVE: CASE EVENT DATE: 202107
